FAERS Safety Report 6028433-0 (Version None)
Quarter: 2009Q1

REPORT INFORMATION
  Report Type: 
  Country: None (occurrence: None)
  Receive Date: 20090102
  Receipt Date: 20081217
  Transmission Date: 20090719
  Serious: Yes (Other)
  Sender: FDA-Public Use
  Company Number: 2008AL012583

PATIENT
  Age: 61 Year
  Sex: Female

DRUGS (1)
  1. LIDOCAINE [Suspect]
     Indication: PROCEDURAL PAIN
     Dosage: 5 PCT; TOP
     Route: 061

REACTIONS (2)
  - ATRIAL FIBRILLATION [None]
  - TREATMENT FAILURE [None]
